FAERS Safety Report 5751076-0 (Version None)
Quarter: 2008Q2

REPORT INFORMATION
  Report Type: 
  Country: None (occurrence: None)
  Receive Date: 20080528
  Receipt Date: 20080423
  Transmission Date: 20081010
  Serious: Yes (Hospitalization)
  Sender: FDA-Public Use
  Company Number: GB-SANOFI-SYNTHELABO-A01200804632

PATIENT
  Age: 69 Year
  Sex: Male

DRUGS (15)
  1. ASPIRIN [Concomitant]
     Indication: ANGIOPLASTY
     Route: 065
  2. ASPIRIN [Concomitant]
     Indication: STENT PLACEMENT
     Route: 065
  3. ASPIRIN [Concomitant]
     Indication: ACUTE MYOCARDIAL INFARCTION
     Route: 065
  4. ABCIXIMAB [Concomitant]
     Indication: ANGIOPLASTY
     Dosage: UNK
     Route: 040
  5. ABCIXIMAB [Concomitant]
     Indication: STENT PLACEMENT
     Dosage: UNK
     Route: 040
  6. ABCIXIMAB [Concomitant]
     Indication: ACUTE MYOCARDIAL INFARCTION
     Dosage: UNK
     Route: 040
  7. RIFAMPICIN [Interacting]
     Indication: MYCOBACTERIUM AVIUM COMPLEX INFECTION
     Dosage: UNK
     Route: 065
     Dates: start: 20030501
  8. CLARITHROMYCIN [Interacting]
     Indication: MYCOBACTERIUM AVIUM COMPLEX INFECTION
     Dosage: UNK
     Route: 065
     Dates: start: 20030301
  9. CLOPIDOGREL [Suspect]
     Indication: ANGIOPLASTY
     Dosage: 600 MG ONCE FOLLOWED BY 75 MG DAILY
     Route: 048
  10. CLOPIDOGREL [Interacting]
     Indication: STENT PLACEMENT
     Dosage: 600 MG ONCE FOLLOWED BY 75 MG DAILY
     Route: 048
  11. CLOPIDOGREL [Interacting]
     Indication: ACUTE MYOCARDIAL INFARCTION
     Dosage: 600 MG ONCE FOLLOWED BY 75 MG DAILY
     Route: 048
  12. CLOPIDOGREL [Interacting]
     Route: 048
  13. CLOPIDOGREL [Interacting]
     Route: 048
  14. CLOPIDOGREL [Interacting]
     Route: 048
  15. ETHAMBUTOL HYDROCHLORIDE [Interacting]
     Indication: MYCOBACTERIUM AVIUM COMPLEX INFECTION
     Dosage: UNK
     Route: 065
     Dates: start: 20030501

REACTIONS (3)
  - DRUG INTERACTION [None]
  - DRUG RESISTANCE [None]
  - THROMBOSIS IN DEVICE [None]
